FAERS Safety Report 5167873-9 (Version None)
Quarter: 2006Q4

REPORT INFORMATION
  Report Type: 
  Country: None (occurrence: None)
  Receive Date: 20061206
  Receipt Date: 20061206
  Transmission Date: 20070319
  Serious: Yes (Hospitalization)
  Sender: FDA-Public Use
  Company Number: None

PATIENT
  Age: 82 Year
  Sex: Male
  Weight: 70.1261 kg

DRUGS (3)
  1. ENOXAPARIN SODIUM [Suspect]
     Indication: INTERNATIONAL NORMALISED RATIO
     Dosage: 70MG SQ Q12H
     Route: 058
  2. WARFARIN SODIUM [Suspect]
     Indication: ATRIAL FIBRILLATION
     Dosage: 5MG Q DAY
  3. ETODOLAC [Suspect]
     Indication: MUSCULOSKELETAL PAIN
     Dosage: 400MG  PO  QDAY
     Route: 048

REACTIONS (8)
  - ASTHENIA [None]
  - DYSPNOEA [None]
  - FAECES DISCOLOURED [None]
  - FATIGUE [None]
  - HAEMATOCRIT DECREASED [None]
  - HAEMOGLOBIN DECREASED [None]
  - INTERNATIONAL NORMALISED RATIO INCREASED [None]
  - POST PROCEDURAL COMPLICATION [None]
